FAERS Safety Report 14122197 (Version 3)
Quarter: 2019Q1

REPORT INFORMATION
  Report Type: Spontaneous
  Country: US (occurrence: US)
  Receive Date: 20171024
  Receipt Date: 20190303
  Transmission Date: 20190417
  Serious: No
  Sender: FDA-Public Use
  Company Number: US-IMPAX LABORATORIES, INC-2017-IPXL-02204

PATIENT
  Sex: Female
  Weight: 47 kg

DRUGS (4)
  1. BOTOX [Concomitant]
     Active Substance: ONABOTULINUMTOXINA
     Indication: TORTICOLLIS
     Dosage: ONCE EVERY 3 MONTHS IN NECK AND BACK
     Route: 065
  2. AMANTADINE. [Concomitant]
     Active Substance: AMANTADINE HYDROCHLORIDE
     Indication: PARKINSON^S DISEASE
     Dosage: 100 MG, BID
     Route: 065
  3. RYTARY [Suspect]
     Active Substance: CARBIDOPA\LEVODOPA
     Indication: PARKINSON^S DISEASE
     Dosage: 36.25/145 MG 3 DF IN FIRST DOSE, 2 DF IN OTHER THREE DOSES (FOURTH DOSE IF HER TREMORS COME BACK).
     Route: 048
     Dates: start: 20151216
  4. GABAPENTIN. [Concomitant]
     Active Substance: GABAPENTIN
     Indication: NEURALGIA
     Dosage: 300 MG, BEDTIME (ONE PILL AT NIGHT)
     Route: 065

REACTIONS (5)
  - Hypokinesia [Not Recovered/Not Resolved]
  - Tremor [Unknown]
  - Malaise [Unknown]
  - Torticollis [Unknown]
  - Musculoskeletal stiffness [Not Recovered/Not Resolved]
